FAERS Safety Report 15075418 (Version 2)
Quarter: 2023Q4

REPORT INFORMATION
  Report Type: Report from Study
  Country: US (occurrence: US)
  Receive Date: 20180627
  Receipt Date: 20231128
  Transmission Date: 20240109
  Serious: No
  Sender: FDA-Public Use
  Company Number: US-SAOL THERAPEUTICS-2018SAO00018

PATIENT
  Age: 44 Year
  Sex: Male

DRUGS (24)
  1. BACLOFEN [Suspect]
     Active Substance: BACLOFEN
     Dosage: 174.93 ?G, \DAY
     Route: 037
     Dates: start: 20170815, end: 20170928
  2. BACLOFEN [Suspect]
     Active Substance: BACLOFEN
     Dosage: 256.06 ?G, \DAY; MAX DOSE
     Route: 037
     Dates: start: 20170815, end: 20170928
  3. BACLOFEN [Suspect]
     Active Substance: BACLOFEN
     Dosage: 200.01 ?G, \DAY
     Route: 037
     Dates: start: 20170928, end: 20171005
  4. BACLOFEN [Suspect]
     Active Substance: BACLOFEN
     Dosage: 316.55 ?G, \DAY; MAX DOSE
     Route: 037
     Dates: start: 20170928, end: 20171005
  5. BACLOFEN [Suspect]
     Active Substance: BACLOFEN
     Dosage: 249.79 ?G, \DAY
     Route: 037
     Dates: start: 20171005
  6. BACLOFEN [Suspect]
     Active Substance: BACLOFEN
     Dosage: 389.54 ?G, \DAY; MAX DOSE
     Route: 037
     Dates: start: 20171005
  7. HYDROMORPHONE [Suspect]
     Active Substance: HYDROMORPHONE
     Dosage: 1.749 MG, \DAY
     Route: 037
     Dates: start: 20170815, end: 20170928
  8. HYDROMORPHONE [Suspect]
     Active Substance: HYDROMORPHONE
     Dosage: 2.560 MG, \DAY; MAX DOSE
     Route: 037
     Dates: start: 20170815, end: 20170928
  9. HYDROMORPHONE [Suspect]
     Active Substance: HYDROMORPHONE
     Dosage: 2 MG, \DAY
     Route: 037
     Dates: start: 20170928, end: 20171005
  10. HYDROMORPHONE [Suspect]
     Active Substance: HYDROMORPHONE
     Dosage: 3.165 MG, \DAY; MAX DOSE
     Route: 037
     Dates: start: 20170928, end: 20171005
  11. HYDROMORPHONE [Suspect]
     Active Substance: HYDROMORPHONE
     Dosage: 2.497 MG, \DAY
     Route: 037
     Dates: start: 20171005
  12. HYDROMORPHONE [Suspect]
     Active Substance: HYDROMORPHONE
     Dosage: 3.895 MG, \DAY; MAX DOSE
     Route: 037
     Dates: start: 20171005
  13. BUPIVACAINE [Suspect]
     Active Substance: BUPIVACAINE
     Dosage: 5.831 MG, \DAY
     Route: 037
     Dates: start: 20170815, end: 20170928
  14. BUPIVACAINE [Suspect]
     Active Substance: BUPIVACAINE
     Dosage: 8.535 MG, \DAY; MAX DOSE
     Route: 037
     Dates: start: 20170815, end: 20170928
  15. BUPIVACAINE [Suspect]
     Active Substance: BUPIVACAINE
     Dosage: 6.667 MG, \DAY
     Route: 037
     Dates: start: 20170928, end: 20171005
  16. BUPIVACAINE [Suspect]
     Active Substance: BUPIVACAINE
     Dosage: 10.552 MG, \DAY; MAX DOSE
     Route: 037
     Dates: start: 20170928, end: 20171005
  17. BUPIVACAINE [Suspect]
     Active Substance: BUPIVACAINE
     Dosage: 8.326 MG, \DAY
     Route: 037
     Dates: start: 20171005
  18. BUPIVACAINE [Suspect]
     Active Substance: BUPIVACAINE
     Dosage: 12.985 MG, \DAY; MAX DOSE
     Route: 037
     Dates: start: 20171005
  19. CLONIDINE [Suspect]
     Active Substance: CLONIDINE
     Dosage: 72.89 ?G, \DAY
     Route: 037
     Dates: start: 20170815, end: 20170928
  20. CLONIDINE [Suspect]
     Active Substance: CLONIDINE
     Dosage: 106.69 ?G, \DAY; MAX DOSE
     Route: 037
     Dates: start: 20170815, end: 20170928
  21. CLONIDINE [Suspect]
     Active Substance: CLONIDINE
     Dosage: 83.34 ?G, \DAY
     Route: 037
     Dates: start: 20170928, end: 20171005
  22. CLONIDINE [Suspect]
     Active Substance: CLONIDINE
     Dosage: 131.90 ?G, \DAY; MAX DOSE
     Route: 037
     Dates: start: 20170928, end: 20171005
  23. CLONIDINE [Suspect]
     Active Substance: CLONIDINE
     Dosage: 104.08 ?G, \DAY
     Route: 037
     Dates: start: 20171005
  24. CLONIDINE [Suspect]
     Active Substance: CLONIDINE
     Dosage: 162.31 ?G, \DAY; MAX DOSE
     Route: 037
     Dates: start: 20171005

REACTIONS (4)
  - Hypoaesthesia [Recovered/Resolved]
  - Implant site pain [Not Recovered/Not Resolved]
  - Implant site mass [Not Recovered/Not Resolved]
  - Catheter site pain [Not Recovered/Not Resolved]

NARRATIVE: CASE EVENT DATE: 20170928
